FAERS Safety Report 9612377 (Version 2)
Quarter: 2014Q1

REPORT INFORMATION
  Report Type: Spontaneous
  Country: US (occurrence: US)
  Receive Date: 20131010
  Receipt Date: 20140106
  Transmission Date: 20141002
  Serious: Yes (Other)
  Sender: FDA-Public Use
  Company Number: US-PFIZER INC-2013287808

PATIENT
  Age: 56 Year
  Sex: Female

DRUGS (2)
  1. XELJANZ [Suspect]
     Indication: RHEUMATOID ARTHRITIS
     Dosage: 5 MG, 2X/DAY
     Route: 048
     Dates: start: 20130624
  2. XELJANZ [Suspect]
     Dosage: 5 MG, 2X/DAY
     Route: 048

REACTIONS (7)
  - Urinary tract infection [Recovered/Resolved]
  - Dysuria [Recovered/Resolved]
  - Pollakiuria [Recovered/Resolved]
  - Urinary tract disorder [Recovered/Resolved]
  - Urinary hesitation [Recovered/Resolved]
  - Arthralgia [Unknown]
  - Pain [Unknown]
